FAERS Safety Report 7943701 (Version 2)
Quarter: 2013Q2

REPORT INFORMATION
  Report Type: Spontaneous
  Country: US (occurrence: US)
  Receive Date: 20110513
  Receipt Date: 20130627
  Transmission Date: 20140414
  Serious: Yes (Hospitalization)
  Sender: FDA-Public Use
  Company Number: US-BAYER-2011-040252

PATIENT
  Age: 19 Year
  Sex: Female

DRUGS (11)
  1. YASMIN [Suspect]
     Indication: CONTRACEPTION
     Dosage: UNK
     Dates: start: 200307, end: 20070828
  2. YASMIN [Suspect]
     Indication: OVARIAN CYST
  3. TORADOL [Concomitant]
     Dosage: 10 MG,1 EVERY 6 HOURS
     Route: 048
  4. TORADOL [Concomitant]
     Dosage: 60 MG, UNK
     Route: 030
  5. SOMA [Concomitant]
     Dosage: 350 MG, 1 THREE TIMES A DAY
     Route: 048
  6. LORTAB [Concomitant]
     Dosage: 7.5 MG, 1 EVERY 4-6 HOURS AS NEEDED
     Route: 048
  7. CODEINE [Concomitant]
  8. MAGNESIUM CITRATE [Concomitant]
     Dosage: HALF BOTTLE AT NIGHT, HALF BOTTLE IN THE MORNING
  9. MOTRIN [Concomitant]
     Dosage: AS NEEDED
  10. METRONIDAZOLE [Concomitant]
     Dosage: 60 MG, UNK
     Route: 030
     Dates: start: 20070727
  11. NIFEREX [Concomitant]

REACTIONS (11)
  - Deep vein thrombosis [None]
  - Thrombophlebitis superficial [None]
  - Deep vein thrombosis [None]
  - Pelvic venous thrombosis [None]
  - Renal vein thrombosis [None]
  - Vena cava thrombosis [None]
  - Injury [None]
  - Pain [None]
  - Emotional distress [None]
  - General physical health deterioration [None]
  - Anxiety [None]
